FAERS Safety Report 9616977 (Version 1)
Quarter: 2013Q4

REPORT INFORMATION
  Report Type: Report from Study
  Country: US (occurrence: US)
  Receive Date: 20131011
  Receipt Date: 20131011
  Transmission Date: 20140711
  Serious: Yes (Other)
  Sender: FDA-Public Use
  Company Number: US-ACTELION-A-NJ2013-89456

PATIENT
  Age: 74 Year
  Sex: Female

DRUGS (11)
  1. TRACLEER [Suspect]
     Indication: PULMONARY ARTERIAL HYPERTENSION
     Dosage: 125 MG, BID
     Route: 048
     Dates: start: 2011
  2. NITROGLYCERINE [Concomitant]
     Dosage: 2 MG, QD
     Route: 062
     Dates: start: 1995
  3. POTASSIUM [Concomitant]
     Dosage: 20 MEQ, QD
     Dates: start: 2010
  4. LASIX [Concomitant]
     Dosage: 20 MG, QD
     Dates: start: 2010
  5. NORVASC [Concomitant]
     Dosage: 5 MG, UNK
     Dates: start: 1995
  6. BENICAR [Concomitant]
     Dosage: 20 MG, UNK
     Dates: start: 1995
  7. NEXIUM [Concomitant]
     Dosage: 20 MG, PRN
     Dates: start: 2010
  8. ANASTROZOLE [Concomitant]
     Dosage: 1 MG, QD
     Dates: start: 1995
  9. SPIRONOLACTONE [Concomitant]
     Dosage: 25 MG, QD
     Dates: start: 2010
  10. COUMADIN [Concomitant]
     Dosage: 7.5 MG, QD
     Dates: start: 2009
  11. HYDROCODONE BITARTRATE AND ACETAMINOPHEN [Concomitant]
     Dosage: 5/325 MG PRN
     Dates: start: 2009

REACTIONS (1)
  - Mammogram abnormal [Not Recovered/Not Resolved]
